FAERS Safety Report 8435021-5 (Version None)
Quarter: 2012Q2

REPORT INFORMATION
  Report Type: 
  Country: None (occurrence: None)
  Receive Date: 20120614
  Receipt Date: 20120611
  Transmission Date: 20120825
  Serious: Yes (Other)
  Sender: FDA-Public Use
  Company Number: US-PFIZER INC-2012021046

PATIENT
  Sex: Male
  Weight: 72.562 kg

DRUGS (9)
  1. FLONASE [Concomitant]
     Dosage: UNK, 2X/DAY
  2. ASPIRIN [Concomitant]
     Dosage: 325 MG, UNK
  3. CHANTIX [Suspect]
     Indication: SMOKING CESSATION THERAPY
     Dosage: 0.5 MG, 1X/DAY
     Route: 048
     Dates: start: 20120103
  4. ADVAIR DISKUS 100/50 [Concomitant]
     Dosage: UNK, 1X/DAY
  5. NITROGLYCERIN [Concomitant]
     Dosage: 0.4 MG, AS NEEDED
  6. LISINOPRIL [Concomitant]
     Indication: HYPERTENSION
     Dosage: 40 MG, 1X/DAY
  7. HYDROCHLOROTHIAZIDE [Concomitant]
     Indication: HYPERTENSION
     Dosage: 25 MG, 1X/DAY
  8. ZOCOR [Concomitant]
     Indication: BLOOD CHOLESTEROL INCREASED
     Dosage: 80 MG, UNK
  9. UROXATRAL [Concomitant]
     Indication: PROSTATOMEGALY
     Dosage: UNK

REACTIONS (3)
  - TREMOR [None]
  - CONSTIPATION [None]
  - IRRITABILITY [None]
